FAERS Safety Report 4365856-X (Version None)
Quarter: 2004Q2

REPORT INFORMATION
  Report Type: 
  Country: None (occurrence: None)
  Receive Date: 20040521
  Receipt Date: 20040512
  Transmission Date: 20050107
  Serious: Yes (Hospitalization)
  Sender: FDA-Public Use
  Company Number: CIP04001035

PATIENT
  Age: 75 Year
  Sex: Female

DRUGS (6)
  1. FURADANTIN [Suspect]
     Indication: URINARY TRACT INFECTION
     Dosage: ORAL
     Route: 048
     Dates: start: 20020101, end: 20040301
  2. TENORMIN [Suspect]
     Indication: HYPERTENSION
     Dosage: DAILY, ORAL
     Route: 048
     Dates: start: 19800601, end: 20020601
  3. ACTONEL [Concomitant]
  4. FOSAMAX [Concomitant]
  5. OMEPRAZOLE [Concomitant]
  6. PREDNISONE TAB [Concomitant]

REACTIONS (7)
  - COUGH [None]
  - DYSPNOEA [None]
  - INTERSTITIAL LUNG DISEASE [None]
  - LUNG CREPITATION [None]
  - PAINFUL RESPIRATION [None]
  - PULMONARY CAVITATION [None]
  - RESTRICTIVE PULMONARY DISEASE [None]
